FAERS Safety Report 7327036-5 (Version None)
Quarter: 2011Q1

REPORT INFORMATION
  Report Type: 
  Country: None (occurrence: None)
  Receive Date: 20110222
  Receipt Date: 20110207
  Transmission Date: 20110831
  Serious: Yes (Other)
  Sender: FDA-Public Use
  Company Number: DSA_44930_2011

PATIENT
  Sex: Female

DRUGS (1)
  1. ENALAPRIL MALEATE [Suspect]
     Indication: PRODUCT USED FOR UNKNOWN INDICATION
     Dosage: DF ORAL
     Route: 048

REACTIONS (6)
  - ASTHENIA [None]
  - DECREASED APPETITE [None]
  - DEAFNESS [None]
  - BACK PAIN [None]
  - HYPOAESTHESIA [None]
  - WEIGHT DECREASED [None]
